FAERS Safety Report 4703801-5 (Version None)
Quarter: 2005Q2

REPORT INFORMATION
  Report Type: 
  Country: None (occurrence: None)
  Receive Date: 20050628
  Receipt Date: 20050613
  Transmission Date: 20051028
  Serious: Yes (Hospitalization)
  Sender: FDA-Public Use
  Company Number: USA0506100460

PATIENT
  Age: 42 Year
  Sex: Female

DRUGS (4)
  1. CYMBALTA [Suspect]
     Indication: MAJOR DEPRESSION
     Dosage: 60 MG DAY
     Dates: start: 20050501
  2. AMBIEN [Concomitant]
  3. OXYCONTIN [Concomitant]
  4. ... [Concomitant]

REACTIONS (1)
  - LOSS OF CONSCIOUSNESS [None]
